FAERS Safety Report 6693264-5 (Version None)
Quarter: 2010Q2

REPORT INFORMATION
  Report Type: 
  Country: None (occurrence: None)
  Receive Date: 20100422
  Receipt Date: 20100415
  Transmission Date: 20101027
  Serious: Yes (Hospitalization)
  Sender: FDA-Public Use
  Company Number: FR-MERCK-1003FRA00127

PATIENT
  Age: 69 Year
  Sex: Female
  Weight: 94 kg

DRUGS (4)
  1. JANUVIA [Suspect]
     Indication: TYPE 2 DIABETES MELLITUS
     Route: 048
     Dates: start: 20100119, end: 20100201
  2. NOVO-NORM [Concomitant]
     Indication: TYPE 2 DIABETES MELLITUS
     Route: 048
  3. STAGID [Concomitant]
     Indication: TYPE 2 DIABETES MELLITUS
     Route: 048
  4. CANDESARTAN CILEXETIL [Concomitant]
     Indication: RENAL FAILURE
     Route: 048

REACTIONS (1)
  - CARDIAC FAILURE [None]
